FAERS Safety Report 8029310-6 (Version None)
Quarter: 2012Q1

REPORT INFORMATION
  Report Type: 
  Country: None (occurrence: None)
  Receive Date: 20120106
  Receipt Date: 20111227
  Transmission Date: 20120608
  Serious: Yes (Death)
  Sender: FDA-Public Use
  Company Number: JP-AMGEN-JPNCT2011064226

PATIENT
  Age: 68 Year
  Sex: Female
  Weight: 58 kg

DRUGS (7)
  1. PANITUMUMAB [Suspect]
     Indication: COLORECTAL CANCER
     Dosage: 350 MG, Q2WK
     Route: 041
     Dates: start: 20110714, end: 20111116
  2. OXALIPLATIN [Concomitant]
     Route: 041
     Dates: start: 20110714, end: 20111116
  3. ORGADRONE [Concomitant]
     Route: 041
     Dates: start: 20110714, end: 20111116
  4. OXALIPLATIN [Concomitant]
     Indication: COLORECTAL CANCER
     Dosage: UNK UNK, Q2WK
     Route: 041
     Dates: start: 20110714, end: 20111116
  5. FLUOROURACIL [Suspect]
     Indication: COLORECTAL CANCER
     Route: 041
     Dates: start: 20110714, end: 20111116
  6. LEVOLEUCOVORIN CALCIUM [Concomitant]
     Indication: COLORECTAL CANCER
     Route: 041
     Dates: start: 20110714, end: 20111116
  7. NEORESTAR [Concomitant]
     Route: 041
     Dates: start: 20110714, end: 20111116

REACTIONS (5)
  - MALAISE [None]
  - DIARRHOEA [None]
  - ALTERED STATE OF CONSCIOUSNESS [None]
  - ACUTE RESPIRATORY FAILURE [None]
  - ASTHENIA [None]
